FAERS Safety Report 10025076 (Version 2)
Quarter: 2014Q1

REPORT INFORMATION
  Report Type: Spontaneous
  Country: CL (occurrence: None)
  Receive Date: 20140214
  Receipt Date: 20140226
  Transmission Date: 20141002
  Serious: Yes (Other)
  Sender: FDA-Public Use
  Company Number: AUR-APL-2014-01394

PATIENT
  Age: 72 Year
  Sex: Female

DRUGS (1)
  1. METFORMIN [Suspect]
     Indication: PRODUCT USED FOR UNKNOWN INDICATION

REACTIONS (7)
  - Fall [None]
  - Subdural haematoma [None]
  - Lactic acidosis [None]
  - Upper gastrointestinal haemorrhage [None]
  - Varices oesophageal [None]
  - Gastric ulcer [None]
  - Multi-organ failure [None]
